FAERS Safety Report 7179350-4 (Version None)
Quarter: 2010Q4

REPORT INFORMATION
  Report Type: 
  Country: None (occurrence: None)
  Receive Date: 20101221
  Receipt Date: 20101208
  Transmission Date: 20110411
  Serious: Yes (Hospitalization)
  Sender: FDA-Public Use
  Company Number: PHHY2010FR84047

PATIENT
  Sex: Female

DRUGS (6)
  1. RASILEZ [Suspect]
     Dosage: 1 DF, BID
     Dates: start: 20100901, end: 20101019
  2. IXPRIM [Concomitant]
  3. CLONIDINE HCL [Concomitant]
  4. TANAKAN [Concomitant]
  5. TOPALGIC [Concomitant]
  6. LEVOTHYROX [Concomitant]

REACTIONS (2)
  - HYPERKALAEMIA [None]
  - TRANSIENT ISCHAEMIC ATTACK [None]
